FAERS Safety Report 7580062-3 (Version None)
Quarter: 2011Q2

REPORT INFORMATION
  Report Type: 
  Country: None (occurrence: None)
  Receive Date: 20110629
  Receipt Date: 20110329
  Transmission Date: 20111010
  Serious: No
  Sender: FDA-Public Use
  Company Number: A0920444A

PATIENT
  Age: 74 Year
  Sex: Female
  Weight: 62 kg

DRUGS (1)
  1. HYCAMTIN [Suspect]
     Indication: NON-SMALL CELL LUNG CANCER
     Dosage: 2.4MG CYCLIC
     Route: 042
     Dates: start: 20110301

REACTIONS (4)
  - URTICARIA [None]
  - HYPERSENSITIVITY [None]
  - PSYCHOSOMATIC DISEASE [None]
  - PRURITUS [None]
